FAERS Safety Report 6286257-3 (Version None)
Quarter: 2009Q3

REPORT INFORMATION
  Report Type: 
  Country: None (occurrence: None)
  Receive Date: 20090728
  Receipt Date: 20090717
  Transmission Date: 20100115
  Serious: Yes (Other)
  Sender: FDA-Public Use
  Company Number: BR-PFIZER INC-2009242571

PATIENT

DRUGS (1)
  1. FELDENE [Suspect]
     Dosage: UNK

REACTIONS (4)
  - HAEMATEMESIS [None]
  - INFARCTION [None]
  - JOINT SWELLING [None]
  - SURGERY [None]
